FAERS Safety Report 9022264 (Version 1)
Quarter: 2013Q1

REPORT INFORMATION
  Report Type: Spontaneous
  Country: US (occurrence: US)
  Receive Date: 20130118
  Receipt Date: 20130118
  Transmission Date: 20140127
  Serious: Yes (Death, Other)
  Sender: FDA-Public Use
  Company Number: PHEH2013US001341

PATIENT
  Age: 74 None
  Sex: Male

DRUGS (5)
  1. EXJADE [Suspect]
     Dosage: 3 DF (DISSOLVE AND TAKE BY MOUTH -COMPLETELY DISSOLVE TABLETS IN LIQUID-), DAILY
     Dates: start: 201208
  2. ATENOLOL [Concomitant]
  3. LISINOPRIL [Concomitant]
  4. PROCRIT [Concomitant]
  5. VITAMIN B 12 [Concomitant]

REACTIONS (3)
  - Myocardial infarction [Fatal]
  - Leukaemia [Unknown]
  - Pneumonia [Unknown]
